FAERS Safety Report 4535787-0 (Version None)
Quarter: 2004Q4

REPORT INFORMATION
  Report Type: 
  Country: None (occurrence: None)
  Receive Date: 20041223
  Receipt Date: 20040311
  Transmission Date: 20050328
  Serious: No
  Sender: FDA-Public Use
  Company Number: US-GLAXOSMITHKLINE-A0502379A

PATIENT
  Age: 36 Year
  Sex: Female

DRUGS (4)
  1. FLONASE [Suspect]
     Dosage: 4SPR PER DAY
     Route: 045
     Dates: start: 20030101
  2. ADVAIR DISKUS 100/50 [Concomitant]
  3. CLARINEX [Concomitant]
  4. ALBUTEROL [Concomitant]

REACTIONS (2)
  - NAUSEA [None]
  - PHARMACEUTICAL PRODUCT COMPLAINT [None]
